FAERS Safety Report 13960719 (Version 1)
Quarter: 2017Q3

REPORT INFORMATION
  Report Type: Spontaneous
  Country: MX (occurrence: MX)
  Receive Date: 20170912
  Receipt Date: 20170912
  Transmission Date: 20171128
  Serious: Yes (Hospitalization, Other)
  Sender: FDA-Public Use
  Company Number: MX-HORIZON-ACT-0255-2017

PATIENT
  Age: 12 Year
  Sex: Male
  Weight: 35 kg

DRUGS (3)
  1. IMUKIN [Suspect]
     Active Substance: INTERFERON GAMMA
     Indication: CHRONIC GRANULOMATOUS DISEASE
     Dosage: 60 ?G TIW
     Route: 058
     Dates: start: 20130806
  2. TRIMETHOPRIM [Concomitant]
     Indication: PROPHYLAXIS
     Route: 048
  3. VORICONAZOLE [Concomitant]
     Indication: ASPERGILLUS INFECTION
     Dates: start: 20170411, end: 20170701

REACTIONS (2)
  - Pyrexia [Recovered/Resolved]
  - Osteomyelitis [Recovered/Resolved]

NARRATIVE: CASE EVENT DATE: 20170411
